FAERS Safety Report 9239828 (Version 2)
Quarter: 2013Q2

REPORT INFORMATION
  Report Type: Spontaneous
  Country: US (occurrence: US)
  Receive Date: 20130418
  Receipt Date: 20130508
  Transmission Date: 20140414
  Serious: Yes (Hospitalization, Other)
  Sender: FDA-Public Use
  Company Number: US-ALLERGAN-1303748US

PATIENT
  Age: 77 Year
  Sex: Male
  Weight: 95.24 kg

DRUGS (21)
  1. ALPHAGAN? P [Suspect]
     Indication: GLAUCOMA
     Dosage: 2 GTT, QD
     Route: 047
     Dates: start: 2004
  2. ALPHAGAN? P [Suspect]
     Dosage: 1 GTT, BID
  3. LUMIGAN [Concomitant]
     Indication: PRODUCT USED FOR UNKNOWN INDICATION
     Dosage: 1 GTT, UNK
  4. ACUVAIL [Concomitant]
     Indication: OEDEMA
     Dosage: 2 GTT, QD
  5. COSOPT [Concomitant]
     Indication: GLAUCOMA
     Dosage: TWICE DAILY
     Dates: start: 2003
  6. LEVOXYL [Concomitant]
     Indication: HYPOTHYROIDISM
     Dosage: 137 MG, QAM
  7. LIPITOR [Concomitant]
     Indication: BLOOD CHOLESTEROL
     Dosage: 20 MG, QHS
  8. PROSCAR [Concomitant]
     Indication: BENIGN PROSTATIC HYPERPLASIA
     Dosage: 5 MG, QD EVENING
  9. NEXIUM [Concomitant]
     Indication: REFLUX GASTRITIS
     Dosage: 20 MG, UNK
  10. LOVAZA [Concomitant]
     Indication: BLOOD TRIGLYCERIDES
     Dosage: 1 G, 4 CAPSULES QD
  11. TAMSULOSIN [Concomitant]
     Indication: RENAL LITHIASIS PROPHYLAXIS
     Dosage: 0.4 MG, UNK
  12. IMODIUM [Concomitant]
     Indication: DIARRHOEA
     Dosage: 6 DAILY, UNK
  13. ASPIRIN [Concomitant]
     Indication: CARDIOVASCULAR EVENT PROPHYLAXIS
     Dosage: 1/2 TABLET EVERY OTHER DAY
  14. VITAMIN D [Concomitant]
     Indication: VITAMIN D DEFICIENCY
     Dosage: 1000 IU, QD
  15. VITAMIN B [Concomitant]
     Indication: VITAMIN B COMPLEX DEFICIENCY
     Dosage: 500-1000, 1 A DAY
  16. IBUPROFEN [Concomitant]
     Indication: PAIN
     Dosage: 200 MG, PRN
  17. NASONEX [Concomitant]
     Indication: PRODUCT USED FOR UNKNOWN INDICATION
     Dosage: 50 MCG, 2 SPRAYS IN EACH NOSTRIL DAILY
  18. NASAL SALINE SPRAY [Concomitant]
     Indication: PRODUCT USED FOR UNKNOWN INDICATION
  19. AMBIEN CR [Concomitant]
     Indication: ANXIETY
     Dosage: 12.5 MG, PRN
  20. LUNESTA [Concomitant]
     Indication: ANXIETY
     Dosage: 3 MG, Q WEEK
  21. VALIUM [Concomitant]
     Indication: ANXIETY

REACTIONS (9)
  - Atrioventricular block first degree [Recovered/Resolved]
  - Hypotension [Recovered/Resolved]
  - Presyncope [Recovered/Resolved]
  - Loss of consciousness [Recovered/Resolved]
  - Blood glucose decreased [Unknown]
  - Heart rate decreased [Recovered/Resolved]
  - Dizziness [Recovered/Resolved]
  - Syncope [Recovering/Resolving]
  - Hypertension [Unknown]
